FAERS Safety Report 5554129-5 (Version None)
Quarter: 2007Q4

REPORT INFORMATION
  Report Type: 
  Country: None (occurrence: None)
  Receive Date: 20071213
  Receipt Date: 20071210
  Transmission Date: 20080405
  Serious: Yes (Hospitalization, Other)
  Sender: FDA-Public Use
  Company Number: DE-AVENTIS-200611574DE

PATIENT
  Age: 51 Year
  Sex: Male

DRUGS (14)
  1. KETEK [Suspect]
     Indication: BRONCHITIS
     Route: 048
     Dates: start: 20021022, end: 20021027
  2. KETEK [Suspect]
     Route: 048
     Dates: start: 20021119, end: 20021124
  3. KETEK [Suspect]
     Indication: PNEUMONIA
     Route: 048
     Dates: start: 20021022, end: 20021027
  4. KETEK [Suspect]
     Route: 048
     Dates: start: 20021119, end: 20021124
  5. KLACID                             /00984601/ [Concomitant]
     Dosage: DOSE: NOT REPORTED
     Dates: start: 20020101, end: 20020101
  6. ERYTHROMYCIN [Concomitant]
     Indication: RESPIRATORY TRACT INFECTION
     Dosage: DOSE: NOT REPORTED
     Dates: start: 20021028, end: 20021101
  7. ERYTHROMYCIN [Concomitant]
     Indication: SINUSITIS
     Dosage: DOSE: NOT REPORTED
     Dates: start: 20021028, end: 20021101
  8. OLYNTH [Concomitant]
     Indication: RESPIRATORY TRACT INFECTION
     Dosage: DOSE: NOT REPORTED
     Dates: start: 20021028
  9. ACETYLCYSTEINE [Concomitant]
     Indication: RESPIRATORY TRACT INFECTION
     Dosage: DOSE: NOT REPORTED
     Dates: start: 20021028
  10. ZYBAN [Concomitant]
     Dosage: DOSE: NOT REPORTED
     Dates: start: 20021022
  11. EUTHYROX [Concomitant]
     Dosage: DOSE: NOT REPORTED
  12. DRUGS FOR FUNCTIONAL GASTROINTEST. DISORDERS [Concomitant]
     Dosage: DOSE: NOT REPORTED
     Route: 048
  13. AVELOX [Concomitant]
     Dosage: DOSE: NOT REPORTED
     Dates: start: 20021125
  14. ARTHREX DUO [Concomitant]
     Dosage: DOSE: NOT REPORTED
     Dates: start: 20021119

REACTIONS (14)
  - ABDOMINAL PAIN [None]
  - ARTHRALGIA [None]
  - CARDIAC DISORDER [None]
  - CHROMATURIA [None]
  - FAECES DISCOLOURED [None]
  - HYPERHIDROSIS [None]
  - MYALGIA [None]
  - NEURALGIA [None]
  - PAIN [None]
  - PLEURISY [None]
  - RESPIRATORY FAILURE [None]
  - RHEUMATOID FACTOR INCREASED [None]
  - SHOCK [None]
  - SKIN DISCOLOURATION [None]
